FAERS Safety Report 8160589-6 (Version None)
Quarter: 2012Q1

REPORT INFORMATION
  Report Type: 
  Country: None (occurrence: None)
  Receive Date: 20120223
  Receipt Date: 20120217
  Transmission Date: 20120608
  Serious: Yes (Hospitalization, Disabling, Other)
  Sender: FDA-Public Use
  Company Number: US-ABBOTT-11P-163-0867974-00

PATIENT
  Sex: Female
  Weight: 59.474 kg

DRUGS (1)
  1. HUMIRA [Suspect]
     Indication: RHEUMATOID ARTHRITIS
     Dates: start: 20080911

REACTIONS (9)
  - HEMIPLEGIA [None]
  - CAROTID ARTERY OCCLUSION [None]
  - SPEECH DISORDER [None]
  - MONOPLEGIA [None]
  - CEREBROVASCULAR ACCIDENT [None]
  - APHASIA [None]
  - ABASIA [None]
  - GAIT DISTURBANCE [None]
  - TRANSIENT ISCHAEMIC ATTACK [None]
